FAERS Safety Report 9195422 (Version 1)
Quarter: 2013Q1

REPORT INFORMATION
  Report Type: Spontaneous
  Country: US (occurrence: US)
  Receive Date: 20130328
  Receipt Date: 20130328
  Transmission Date: 20140127
  Serious: No
  Sender: FDA-Public Use
  Company Number: US-ALLERGAN-1302084US

PATIENT
  Age: 74 Year
  Sex: Female

DRUGS (2)
  1. LUMIGAN? 0.01% [Suspect]
     Indication: GLAUCOMA
     Dosage: 2 GTT, QHS
     Route: 047
     Dates: start: 20130129, end: 201302
  2. LUMIGAN? 0.01% [Suspect]
     Dosage: 1 GTT, QHS
     Route: 047
     Dates: start: 20121207, end: 20130129

REACTIONS (4)
  - Skin discolouration [Recovering/Resolving]
  - Eyelid irritation [Recovering/Resolving]
  - Growth of eyelashes [Recovering/Resolving]
  - Eyelids pruritus [Recovering/Resolving]
